FAERS Safety Report 11798038 (Version 3)
Quarter: 2016Q1

REPORT INFORMATION
  Report Type: Spontaneous
  Country: US (occurrence: US)
  Receive Date: 20151203
  Receipt Date: 20160107
  Transmission Date: 20160525
  Serious: Yes (Hospitalization, Other)
  Sender: FDA-Public Use
  Company Number: US-009507513-1512USA000894

PATIENT
  Age: 53 Year
  Sex: Male

DRUGS (2)
  1. KEYTRUDA [Suspect]
     Active Substance: PEMBROLIZUMAB
     Indication: MALIGNANT MELANOMA
     Dosage: UNK
     Dates: start: 201502, end: 201508
  2. OPDIVO [Concomitant]
     Active Substance: NIVOLUMAB
     Dosage: UNK

REACTIONS (1)
  - Nodular melanoma [Recovering/Resolving]

NARRATIVE: CASE EVENT DATE: 201510
